FAERS Safety Report 17461146 (Version 1)
Quarter: 2020Q1

REPORT INFORMATION
  Report Type: Report from Study
  Country: US (occurrence: US)
  Receive Date: 20200226
  Receipt Date: 20200226
  Transmission Date: 20200409
  Serious: No
  Sender: FDA-Public Use
  Company Number: US-KYOWAKIRIN-2020BKK002088

PATIENT

DRUGS (2)
  1. NOURIANZ [Suspect]
     Active Substance: ISTRADEFYLLINE
     Indication: PARKINSON^S DISEASE
     Dosage: ONE 20 MG TABLET ONCE DAILY (8 AM)
     Route: 065
     Dates: start: 20200205
  2. SINEMET [Concomitant]
     Active Substance: CARBIDOPA\LEVODOPA
     Indication: PRODUCT USED FOR UNKNOWN INDICATION
     Dosage: 2 1/2 TABLETS EVERY 3 HOURS
     Route: 065

REACTIONS (1)
  - Freezing phenomenon [Not Recovered/Not Resolved]

NARRATIVE: CASE EVENT DATE: 202002
